FAERS Safety Report 5842371-5 (Version None)
Quarter: 2008Q3

REPORT INFORMATION
  Report Type: 
  Country: None (occurrence: None)
  Receive Date: 20080812
  Receipt Date: 20080731
  Transmission Date: 20090109
  Serious: No
  Sender: FDA-Public Use
  Company Number: AU-BOEHRINGER INGELHEIM GMBH, GERMANY-2008-BP-11762AU

PATIENT
  Sex: Male
  Weight: 60 kg

DRUGS (3)
  1. VIRAMUNE [Suspect]
     Indication: ADVERSE EVENT
     Route: 048
     Dates: start: 20080704, end: 20080715
  2. PARACETAMOL [Suspect]
     Indication: PYREXIA
     Dosage: 4 TO 6 G
     Route: 048
     Dates: start: 20080711, end: 20080715
  3. KIVEXA [Concomitant]
     Dosage: 600/300 MG
     Route: 048
     Dates: start: 20080704

REACTIONS (3)
  - HEPATOTOXICITY [None]
  - PYREXIA [None]
  - RASH [None]
